FAERS Safety Report 12160078 (Version 1)
Quarter: 2016Q1

REPORT INFORMATION
  Report Type: Spontaneous
  Country: CH (occurrence: CH)
  Receive Date: 20160308
  Receipt Date: 20160308
  Transmission Date: 20160526
  Serious: Yes (Hospitalization, Other)
  Sender: FDA-Public Use
  Company Number: CH-BIOGEN-2012BI011545

PATIENT
  Age: 32 Year
  Sex: Female
  Weight: 94 kg

DRUGS (7)
  1. SOLU-MEDROL [Concomitant]
     Active Substance: METHYLPREDNISOLONE SODIUM SUCCINATE
     Indication: PRODUCT USED FOR UNKNOWN INDICATION
     Route: 048
     Dates: start: 201111
  2. CALCIUM SANDOZ [Concomitant]
     Active Substance: CALCIUM
     Indication: PRODUCT USED FOR UNKNOWN INDICATION
     Dates: start: 20120404, end: 20120404
  3. CALCIUM SANDOZ [Concomitant]
     Active Substance: CALCIUM
     Dates: start: 20120409, end: 20120409
  4. TYSABRI [Suspect]
     Active Substance: NATALIZUMAB
     Indication: MULTIPLE SCLEROSIS
     Dates: start: 20071107, end: 20120228
  5. EFFEXOR [Concomitant]
     Active Substance: VENLAFAXINE HYDROCHLORIDE
     Indication: PRODUCT USED FOR UNKNOWN INDICATION
     Dates: start: 201111
  6. ACIDUM FOLICUM STREULI [Concomitant]
     Indication: FOLATE DEFICIENCY
     Dates: start: 20120331
  7. CALCIUM SANDOZ [Concomitant]
     Active Substance: CALCIUM
     Dates: start: 20120407, end: 20120407

REACTIONS (4)
  - Cerebellar atrophy [Not Recovered/Not Resolved]
  - Progressive multifocal leukoencephalopathy [Not Recovered/Not Resolved]
  - Immune reconstitution inflammatory syndrome [Not Recovered/Not Resolved]
  - JC virus granule cell neuronopathy [Unknown]

NARRATIVE: CASE EVENT DATE: 201110
